FAERS Safety Report 5911817-6 (Version None)
Quarter: 2008Q4

REPORT INFORMATION
  Report Type: 
  Country: None (occurrence: None)
  Receive Date: 20081008
  Receipt Date: 20081006
  Transmission Date: 20090506
  Serious: Yes (Other)
  Sender: FDA-Public Use
  Company Number: GB-RANBAXY-2008RR-18456

PATIENT
  Age: 76 Year
  Sex: Female

DRUGS (5)
  1. CIPROFLOXACIN HCL [Suspect]
     Indication: DEVICE RELATED INFECTION
  2. FUSIDIC ACID [Suspect]
     Indication: INFECTION
  3. MEROPENEM [Suspect]
     Indication: INFECTION
  4. PRISTINAMYCIN [Suspect]
     Indication: INFECTION
  5. VANCOMYCIN HYDROCHLORIDE [Suspect]
     Indication: INFECTION

REACTIONS (1)
  - MULTIPLE-DRUG RESISTANCE [None]
